FAERS Safety Report 19101363 (Version 1)
Quarter: 2021Q2

REPORT INFORMATION
  Report Type: Spontaneous
  Country: US (occurrence: US)
  Receive Date: 20210406
  Receipt Date: 20210406
  Transmission Date: 20210717
  Serious: Yes (Death)
  Sender: FDA-Public Use
  Company Number: None

PATIENT
  Age: 55 Year
  Sex: Male

DRUGS (8)
  1. ONDANSETRON 4 MG/2 ML VIAL [Concomitant]
  2. OXYCODONE HYDROCHLORIDE. [Concomitant]
     Active Substance: OXYCODONE HYDROCHLORIDE
  3. KEYTRUDA [Suspect]
     Active Substance: PEMBROLIZUMAB
  4. FAMOTIDINE 20 MG/2 ML VIAL [Concomitant]
  5. DEXAMETHASONE 10 MG/ML VIAL [Concomitant]
  6. DIPHENHYDRAMINE 50 MG/ML [Concomitant]
     Active Substance: DIPHENHYDRAMINE
  7. LISINOPRIL. [Concomitant]
     Active Substance: LISINOPRIL
  8. AVASTIN [Suspect]
     Active Substance: BEVACIZUMAB

REACTIONS (1)
  - Death [None]

NARRATIVE: CASE EVENT DATE: 20210406
